FAERS Safety Report 24708003 (Version 2)
Quarter: 2024Q4

REPORT INFORMATION
  Report Type: Spontaneous
  Country: BR (occurrence: BR)
  Receive Date: 20241206
  Receipt Date: 20241211
  Transmission Date: 20250114
  Serious: Yes (Other)
  Sender: NOVARTIS
  Company Number: BR-002147023-NVSC2024BR230342

PATIENT
  Age: 40 Year
  Sex: Female
  Weight: 58 kg

DRUGS (11)
  1. ENTRESTO [Suspect]
     Active Substance: SACUBITRIL\VALSARTAN
     Indication: Cardiac failure
     Dosage: 400 MG, QD
     Route: 048
     Dates: start: 2020
  2. ZOMETA [Suspect]
     Active Substance: ZOLEDRONIC ACID
     Indication: Lung neoplasm malignant
     Dosage: 3 MG (BUT FOR 12 MONTHS, 4MG DOSE)
     Route: 042
     Dates: end: 202409
  3. ZOMETA [Suspect]
     Active Substance: ZOLEDRONIC ACID
     Indication: Metastases to bone
  4. SELPERCATINIB [Concomitant]
     Active Substance: SELPERCATINIB
     Indication: Specialist consultation
     Dosage: 240 MG, QD
     Route: 048
     Dates: start: 202401
  5. LEVOTHYROXINE [Concomitant]
     Active Substance: LEVOTHYROXINE
     Indication: Hypothyroidism
     Dosage: 150 MG
     Route: 048
     Dates: start: 2005
  6. HYDROCHLOROTHIAZIDE [Concomitant]
     Active Substance: HYDROCHLOROTHIAZIDE
     Indication: Product used for unknown indication
     Dosage: 25 MG
     Route: 065
  7. SYNTHROID [Concomitant]
     Active Substance: LEVOTHYROXINE SODIUM
     Indication: Product used for unknown indication
     Dosage: 150 UG
     Route: 065
  8. BUPROPION [Concomitant]
     Active Substance: BUPROPION
     Indication: Product used for unknown indication
     Dosage: 150 MG
     Route: 065
  9. ESTRADIOL [Concomitant]
     Active Substance: ESTRADIOL
     Indication: Product used for unknown indication
     Dosage: 1 MG
     Route: 065
  10. SIMVASTATIN [Concomitant]
     Active Substance: SIMVASTATIN
     Indication: Product used for unknown indication
     Dosage: 20 MG
     Route: 065
  11. BROMOPRIDE [Concomitant]
     Active Substance: BROMOPRIDE
     Indication: Product used for unknown indication
     Dosage: 10 MG
     Route: 065

REACTIONS (20)
  - Lung neoplasm malignant [Unknown]
  - Metastases to bone [Unknown]
  - Adenocarcinoma [Unknown]
  - Lymphangitis [Unknown]
  - Myocardial infarction [Unknown]
  - Renal failure [Recovered/Resolved with Sequelae]
  - Osteonecrosis of jaw [Unknown]
  - Paranasal sinus necrosis [Not Recovered/Not Resolved]
  - Asthma [Unknown]
  - Dyspnoea exertional [Unknown]
  - Cough [Unknown]
  - Pulmonary arterial pressure abnormal [Unknown]
  - Pulmonary septal thickening [Unknown]
  - Oedema [Unknown]
  - Nodule [Unknown]
  - Bronchial disorder [Unknown]
  - Pleural effusion [Unknown]
  - Bone lesion [Unknown]
  - Oedema peripheral [Unknown]
  - Blood creatine increased [Recovered/Resolved]

NARRATIVE: CASE EVENT DATE: 20220311
